FAERS Safety Report 17602273 (Version 2)
Quarter: 2020Q2

REPORT INFORMATION
  Report Type: Spontaneous
  Country: US (occurrence: US)
  Receive Date: 20200331
  Receipt Date: 20200617
  Transmission Date: 20200713
  Serious: No
  Sender: FDA-Public Use
  Company Number: US-JNJFOC-20200320076

PATIENT
  Sex: Female
  Weight: 54.48 kg

DRUGS (1)
  1. MENS ROGAINE EXTRA STRENGTH [Suspect]
     Active Substance: MINOXIDIL
     Indication: ALOPECIA
     Dosage: HALF A CAPFUL?THE PRODUCT WAS LAST ADMINISTERED ON 01-MAR-2020.
     Route: 061
     Dates: start: 2015

REACTIONS (5)
  - Product use issue [Unknown]
  - Product formulation issue [Unknown]
  - Product container issue [Unknown]
  - Off label use [Unknown]
  - Overdose [Unknown]

NARRATIVE: CASE EVENT DATE: 2015
